FAERS Safety Report 16243643 (Version 1)
Quarter: 2019Q2

REPORT INFORMATION
  Report Type: Spontaneous
  Country: US (occurrence: US)
  Receive Date: 20190425
  Receipt Date: 20190425
  Transmission Date: 20190711
  Serious: Yes (Hospitalization)
  Sender: FDA-Public Use
  Company Number: None

PATIENT
  Age: 65 Year
  Sex: Female

DRUGS (21)
  1. CALCIUM [Concomitant]
     Active Substance: CALCIUM
     Dates: start: 20190424
  2. TRAMADOL. [Concomitant]
     Active Substance: TRAMADOL
     Dates: start: 20190424
  3. NYSTATIN. [Concomitant]
     Active Substance: NYSTATIN
     Dates: start: 20190424
  4. SENNA [Concomitant]
     Active Substance: SENNA LEAF\SENNOSIDES\SENNOSIDES A AND B
     Dates: start: 20190424
  5. FLUOXETINE [Concomitant]
     Active Substance: FLUOXETINE HYDROCHLORIDE
     Dates: start: 20190424
  6. CEFUROXIME. [Concomitant]
     Active Substance: CEFUROXIME
     Dates: start: 20190424
  7. SIMVASTATIN. [Concomitant]
     Active Substance: SIMVASTATIN
     Dates: start: 20190424
  8. TRAZODONE [Concomitant]
     Active Substance: TRAZODONE HYDROCHLORIDE
     Dates: start: 20190424
  9. IBUPROFEN. [Concomitant]
     Active Substance: IBUPROFEN
     Dates: start: 20190424
  10. KLOR- CON [Concomitant]
     Dates: start: 20190424
  11. TORSEMIDE. [Concomitant]
     Active Substance: TORSEMIDE
     Dates: start: 20190424
  12. ASPIRIN. [Concomitant]
     Active Substance: ASPIRIN
     Dates: start: 20190424
  13. IRON [Concomitant]
     Active Substance: IRON
     Dates: start: 20190424
  14. MAGNESIUM [Concomitant]
     Active Substance: MAGNESIUM
     Dates: start: 20190424
  15. FLUTICASONE. [Concomitant]
     Active Substance: FLUTICASONE
     Dates: start: 20190424
  16. PREPARATION [Concomitant]
     Dates: start: 20190424
  17. IBRANCE [Suspect]
     Active Substance: PALBOCICLIB
     Indication: BREAST CANCER
     Route: 048
     Dates: start: 20180920
  18. LOSARTAN POT [Concomitant]
     Active Substance: LOSARTAN POTASSIUM
     Dates: start: 20190424
  19. MULTI VITAMIN [Concomitant]
     Active Substance: VITAMINS
     Dates: start: 20190424
  20. OMEPRAZOLE. [Concomitant]
     Active Substance: OMEPRAZOLE
     Dates: start: 20190424
  21. VITAMIN D3 [Concomitant]
     Active Substance: CHOLECALCIFEROL
     Dates: start: 20190424

REACTIONS (6)
  - Lymphoedema [None]
  - Localised infection [None]
  - Fatigue [None]
  - Constipation [None]
  - Haemorrhoids [None]
  - Depression [None]
